FAERS Safety Report 8400964-5 (Version None)
Quarter: 2012Q2

REPORT INFORMATION
  Report Type: 
  Country: None (occurrence: None)
  Receive Date: 20120601
  Receipt Date: 20120525
  Transmission Date: 20120825
  Serious: Yes (Hospitalization, Other)
  Sender: FDA-Public Use
  Company Number: US-BIOGENIDEC-2009BI042169

PATIENT
  Sex: Female
  Weight: 53 kg

DRUGS (12)
  1. AVONEX [Suspect]
     Indication: MULTIPLE SCLEROSIS
     Route: 030
     Dates: start: 20020906, end: 20040301
  2. AVONEX [Suspect]
     Route: 030
     Dates: end: 20080101
  3. MEDICATIONS (NOS) [Concomitant]
     Indication: TRIGEMINAL NEURALGIA
  4. TEGRETOL [Concomitant]
     Indication: TRIGEMINAL NEURALGIA
  5. AVONEX [Suspect]
     Route: 030
     Dates: start: 20110429, end: 20110101
  6. KEPPRA [Concomitant]
     Indication: TRIGEMINAL NEURALGIA
  7. LYRICA [Concomitant]
     Indication: TRIGEMINAL NEURALGIA
  8. AVONEX [Suspect]
     Route: 030
     Dates: start: 20090228, end: 20100901
  9. NEURONTIN [Concomitant]
     Indication: TRIGEMINAL NEURALGIA
  10. AVONEX [Suspect]
     Route: 030
     Dates: start: 20110701
  11. COPAXONE [Concomitant]
  12. REBIF [Concomitant]
     Indication: MULTIPLE SCLEROSIS

REACTIONS (25)
  - PELVIC SEPSIS [None]
  - GRAND MAL CONVULSION [None]
  - POST PROCEDURAL COMPLICATION [None]
  - CONVULSION [None]
  - FLUID RETENTION [None]
  - ABDOMINAL ABSCESS [None]
  - LOCALISED OEDEMA [None]
  - MENTAL IMPAIRMENT [None]
  - PANCREATITIS [None]
  - PANCREATIC CYST [None]
  - HERNIA [None]
  - OBESITY [None]
  - APHASIA [None]
  - ABASIA [None]
  - PROCEDURAL PAIN [None]
  - RADICULOTOMY [None]
  - OVARIAN CYST [None]
  - ABSCESS RUPTURE [None]
  - TOXICITY TO VARIOUS AGENTS [None]
  - FALL [None]
  - DRUG HYPERSENSITIVITY [None]
  - INTESTINAL PERFORATION [None]
  - OVERDOSE [None]
  - GALLBLADDER NON-FUNCTIONING [None]
  - DRUG ABUSE [None]
